FAERS Safety Report 15759128 (Version 2)
Quarter: 2019Q1

REPORT INFORMATION
  Report Type: Spontaneous
  Country: IT (occurrence: IT)
  Receive Date: 20181226
  Receipt Date: 20190219
  Transmission Date: 20190417
  Serious: Yes (Other)
  Sender: FDA-Public Use
  Company Number: IT-SUN PHARMACEUTICAL INDUSTRIES LTD-2018RR-194588

PATIENT
  Age: 74 Year
  Sex: Female
  Weight: 47 kg

DRUGS (5)
  1. ORAMORPH? 20 MG/ML SOLUZIONE ORALE [Concomitant]
     Active Substance: MORPHINE SULFATE
     Indication: CANCER PAIN
     Dosage: ()
     Route: 048
  2. CREON 10000 U.PH.EUR. CAPSULE RIGIDE A RILASCIO MODIFICATO [Concomitant]
     Indication: BILE DUCT ADENOCARCINOMA
     Dosage: ()
     Route: 048
  3. DEURSIL [Concomitant]
     Active Substance: URSODIOL
     Indication: CHOLELITHIASIS
     Dosage: 150 MILLIGRAM, DAILY
     Route: 048
  4. GEMCITABINA SUN 1000 MG POLVERE PER SOLUZIONE PER INFUSIONE [Suspect]
     Active Substance: GEMCITABINE HYDROCHLORIDE
     Indication: BILE DUCT ADENOCARCINOMA
     Dosage: 1500 MG, IN TOTAL
     Route: 042
     Dates: start: 20181102, end: 20181102
  5. TACHIPIRINA 1000 MG COMPRESSE [Concomitant]
     Active Substance: ACETAMINOPHEN
     Indication: CANCER PAIN
     Route: 048

REACTIONS (1)
  - Leukopenia [Recovering/Resolving]

NARRATIVE: CASE EVENT DATE: 20181107
